FAERS Safety Report 9369613 (Version 1)
Quarter: 2013Q2

REPORT INFORMATION
  Report Type: Spontaneous
  Country: US (occurrence: US)
  Receive Date: 20130626
  Receipt Date: 20130626
  Transmission Date: 20140414
  Serious: No
  Sender: FDA-Public Use
  Company Number: US-MYLANLABS-2013S1006841

PATIENT
  Age: 78 Year
  Sex: Female
  Weight: 47.63 kg

DRUGS (2)
  1. PERFOROMIST (FORMOTEROL FUMARATE) INHALATION SOLUTION [Suspect]
     Indication: CHRONIC OBSTRUCTIVE PULMONARY DISEASE
     Route: 055
     Dates: start: 201303, end: 20130324
  2. BOTOX [Concomitant]
     Indication: TORTICOLLIS
     Dosage: INJECTIONS ON THE BACK OF HER NECK EVERY THREE MONTHS
     Dates: start: 1994

REACTIONS (7)
  - Aphagia [Recovering/Resolving]
  - Decreased appetite [Recovered/Resolved]
  - Tremor [Recovering/Resolving]
  - Diarrhoea [Recovering/Resolving]
  - Insomnia [Recovering/Resolving]
  - Nausea [Recovering/Resolving]
  - Sputum increased [Recovered/Resolved]
